FAERS Safety Report 4723922-0 (Version None)
Quarter: 2005Q3

REPORT INFORMATION
  Report Type: 
  Country: None (occurrence: None)
  Receive Date: 20050722
  Receipt Date: 20050713
  Transmission Date: 20060218
  Serious: Yes (Hospitalization)
  Sender: FDA-Public Use
  Company Number: 200511055BWH

PATIENT
  Age: 84 Year
  Sex: Male

DRUGS (9)
  1. LEVITRA [Suspect]
     Indication: ERECTILE DYSFUNCTION
     Dosage: 20 MG, TOTAL DAILY, ORAL
     Route: 048
     Dates: start: 20050501
  2. VIAGRA [Concomitant]
  3. ASPIRIN [Concomitant]
  4. GLUCOTROL XL [Concomitant]
  5. MONOPRIL-HCT [Concomitant]
  6. VYTORIN [Concomitant]
  7. RESCON JR [Concomitant]
  8. ISOSORBIDE MONO [Concomitant]
  9. ALBUTEROL [Concomitant]

REACTIONS (3)
  - DEHYDRATION [None]
  - ELECTROCARDIOGRAM ABNORMAL [None]
  - VOMITING [None]
